FAERS Safety Report 24141813 (Version 1)
Quarter: 2024Q3

REPORT INFORMATION
  Report Type: Spontaneous
  Country: US (occurrence: US)
  Receive Date: 20240726
  Receipt Date: 20240726
  Transmission Date: 20241017
  Serious: Yes (Other)
  Sender: ACIC FINE CHEMICALS
  Company Number: US-ACIC Fine Chemicals Inc-2159661

PATIENT
  Sex: Female

DRUGS (4)
  1. DOCETAXEL [Suspect]
     Active Substance: DOCETAXEL\DOCETAXEL ANHYDROUS
     Indication: Endometrial cancer
  2. PACLITAXEL [Suspect]
     Active Substance: PACLITAXEL
  3. PACLITAXEL [Suspect]
     Active Substance: PACLITAXEL
  4. CARBOPLATIN [Suspect]
     Active Substance: CARBOPLATIN

REACTIONS (3)
  - Endometrial cancer recurrent [Unknown]
  - Product use in unapproved indication [Unknown]
  - Adverse drug reaction [Unknown]
